FAERS Safety Report 25805157 (Version 1)
Quarter: 2025Q3

REPORT INFORMATION
  Report Type: Report from Study
  Country: US (occurrence: US)
  Receive Date: 20250916
  Receipt Date: 20250916
  Transmission Date: 20251020
  Serious: No
  Sender: SANDOZ
  Company Number: US-SANDOZ-SDZ2024US088158

PATIENT
  Age: 10 Year
  Sex: Male

DRUGS (6)
  1. OMNITROPE [Suspect]
     Active Substance: SOMATROPIN
     Dosage: 0.2 ML, QD, 5.8MG VIAL
     Route: 058
     Dates: start: 20240920
  2. OMNITROPE [Suspect]
     Active Substance: SOMATROPIN
     Dosage: 0.2 ML, QD, 5.8MG VIAL
     Route: 058
     Dates: start: 20240920
  3. OMNITROPE [Suspect]
     Active Substance: SOMATROPIN
     Indication: Short stature
     Dosage: 0.2 ML, QD
     Route: 058
     Dates: start: 20241014
  4. OMNITROPE [Suspect]
     Active Substance: SOMATROPIN
     Indication: Short stature
     Dosage: 0.2 ML, QD
     Route: 058
     Dates: start: 20241014
  5. OMNITROPE [Suspect]
     Active Substance: SOMATROPIN
     Route: 058
  6. OMNITROPE [Suspect]
     Active Substance: SOMATROPIN
     Route: 058

REACTIONS (7)
  - Wrong technique in product usage process [Unknown]
  - Product preparation issue [Unknown]
  - Device difficult to use [Unknown]
  - Product storage error [Unknown]
  - Expired product administered [Unknown]
  - Product quality issue [Unknown]
  - Device leakage [Unknown]

NARRATIVE: CASE EVENT DATE: 20241014
